FAERS Safety Report 21301576 (Version 1)
Quarter: 2022Q3

REPORT INFORMATION
  Report Type: Other
  Country: CA (occurrence: CA)
  Receive Date: 20220907
  Receipt Date: 20220907
  Transmission Date: 20221026
  Serious: Yes (Death)
  Sender: FDA-Public Use
  Company Number: CA-INTERCEPT-PM2022001202

PATIENT
  Sex: Female

DRUGS (2)
  1. OCALIVA [Suspect]
     Active Substance: OBETICHOLIC ACID
     Indication: Primary biliary cholangitis
     Dosage: 5 MILLIGRAM, QW
     Route: 048
     Dates: start: 20220613
  2. URSODIOL [Concomitant]
     Active Substance: URSODIOL
     Dosage: UNK
     Dates: start: 20140103

REACTIONS (4)
  - Death [Fatal]
  - Child-Pugh-Turcotte score increased [Not Recovered/Not Resolved]
  - Dizziness [Unknown]
  - Peripheral swelling [Unknown]

NARRATIVE: CASE EVENT DATE: 20220101
